FAERS Safety Report 9509031 (Version 4)
Quarter: 2013Q4

REPORT INFORMATION
  Report Type: Spontaneous
  Country: JP (occurrence: JP)
  Receive Date: 20130909
  Receipt Date: 20131008
  Transmission Date: 20140711
  Serious: Yes (Hospitalization)
  Sender: FDA-Public Use
  Company Number: JP-ASTRAZENECA-2013SE67005

PATIENT
  Age: 26312 Day
  Sex: Female
  Weight: 37 kg

DRUGS (6)
  1. MARCAIN SPINAL [Suspect]
     Indication: SPINAL ANAESTHESIA
     Dosage: 14 MG (2.8 ML)
     Route: 037
     Dates: start: 20130829, end: 20130829
  2. LIPITOR [Concomitant]
     Indication: HYPERLIPIDAEMIA
     Route: 048
     Dates: start: 2012
  3. LENDORMIN [Concomitant]
     Indication: INSOMNIA
     Route: 048
  4. SUREPOST [Concomitant]
     Indication: DIABETES MELLITUS
     Route: 048
  5. ATROPINE [Concomitant]
     Route: 030
     Dates: start: 20130829, end: 20130829
  6. FLUMARIN [Concomitant]
     Indication: INFECTION PROPHYLAXIS
     Route: 041
     Dates: start: 20130829, end: 20130831

REACTIONS (1)
  - Cauda equina syndrome [Recovering/Resolving]
